FAERS Safety Report 20873955 (Version 1)
Quarter: 2022Q2

REPORT INFORMATION
  Report Type: Spontaneous
  Country: FR (occurrence: FR)
  Receive Date: 20220525
  Receipt Date: 20220525
  Transmission Date: 20220720
  Serious: Yes (Hospitalization, Other)
  Sender: FDA-Public Use
  Company Number: FR-BIOGARAN-B22000323

PATIENT
  Age: 49 Year
  Sex: Male

DRUGS (11)
  1. PREGABALIN [Suspect]
     Active Substance: PREGABALIN
     Indication: Fibromyalgia
     Dosage: 50 MILLIGRAM, QD, 25 MG, BID
     Route: 048
     Dates: start: 20180503
  2. PREGABALIN [Suspect]
     Active Substance: PREGABALIN
     Indication: Pain
     Dosage: 600 MILLIGRAM, QD, 150 MG, BID
     Route: 065
     Dates: start: 20180223, end: 20180224
  3. PREGABALIN [Suspect]
     Active Substance: PREGABALIN
     Dosage: 600 MILLIGRAM, QD, 300 MG, BID
     Route: 065
     Dates: start: 20180224, end: 20180224
  4. PREGABALIN [Suspect]
     Active Substance: PREGABALIN
     Dosage: 25 MILLIGRAM, QD (25 MG, QD)
     Route: 065
  5. PREGABALIN [Suspect]
     Active Substance: PREGABALIN
     Dosage: 50 MILLIGRAM, QD (50 MG, QD)
     Route: 065
  6. PREGABALIN [Suspect]
     Active Substance: PREGABALIN
     Dosage: 75 MILLIGRAM, QD (75 MG, QD)
     Route: 065
  7. PREGABALIN [Suspect]
     Active Substance: PREGABALIN
     Indication: Fibromyalgia
     Dosage: 200 MILLIGRAM, QD
     Route: 048
     Dates: start: 20180222, end: 20180222
  8. TRAMADOL [Concomitant]
     Active Substance: TRAMADOL
     Indication: Fibromyalgia
     Dosage: 50 MILLIGRAM, PRN
     Route: 048
     Dates: start: 20180222
  9. CYMBALTA [Concomitant]
     Active Substance: DULOXETINE HYDROCHLORIDE
     Indication: Pain
     Dosage: UNK
     Route: 065
     Dates: start: 20180503
  10. PREDNISOLONE [Concomitant]
     Active Substance: PREDNISOLONE
     Indication: Fibromyalgia
     Dosage: 60 MILLIGRAM, QD
     Route: 065
     Dates: start: 20180222
  11. TRAMADOL [Concomitant]
     Active Substance: TRAMADOL
     Indication: Fibromyalgia
     Dosage: 200 MILLIGRAM, QD, 100 MG, BID
     Route: 048
     Dates: start: 20180222

REACTIONS (7)
  - Muscle spasms [Recovered/Resolved]
  - Fibromyalgia [Unknown]
  - Dyspnoea [Recovered/Resolved]
  - Ataxia [Not Recovered/Not Resolved]
  - Tinnitus [Unknown]
  - Hallucination, visual [Unknown]
  - Intentional product use issue [Unknown]

NARRATIVE: CASE EVENT DATE: 20180222
